FAERS Safety Report 15991057 (Version 1)
Quarter: 2019Q1

REPORT INFORMATION
  Report Type: Spontaneous
  Country: US (occurrence: US)
  Receive Date: 20190221
  Receipt Date: 20190221
  Transmission Date: 20190418
  Serious: No
  Sender: FDA-Public Use
  Company Number: US-PERRIGO-18US003453

PATIENT
  Sex: Male
  Weight: 81.63 kg

DRUGS (4)
  1. KETOCONAZOLE. [Suspect]
     Active Substance: KETOCONAZOLE
     Indication: PRURITUS
     Dosage: 1 SMALL APPLICATION, QD
     Route: 061
     Dates: start: 2013
  2. ENBREL [Concomitant]
     Active Substance: ETANERCEPT
     Indication: RHEUMATOID ARTHRITIS
     Dosage: UNK
     Route: 058
     Dates: start: 201705
  3. PREDNISONE. [Concomitant]
     Active Substance: PREDNISONE
     Indication: RHEUMATOID ARTHRITIS
     Dosage: UNK
     Route: 065
     Dates: start: 2008
  4. KETOCONAZOLE. [Suspect]
     Active Substance: KETOCONAZOLE
     Indication: SKIN LESION

REACTIONS (2)
  - Off label use [Unknown]
  - Therapeutic response unexpected [Unknown]

NARRATIVE: CASE EVENT DATE: 2013
